FAERS Safety Report 23930174 (Version 1)
Quarter: 2024Q2

REPORT INFORMATION
  Report Type: Spontaneous
  Country: US (occurrence: US)
  Receive Date: 20240602
  Receipt Date: 20240602
  Transmission Date: 20240716
  Serious: Yes (Hospitalization, Other)
  Sender: FDA-Public Use
  Company Number: US-Axellia-005199

PATIENT
  Age: 41 Year
  Sex: Male

DRUGS (1)
  1. VANCOMYCIN [Suspect]
     Active Substance: VANCOMYCIN
     Indication: Cellulitis
     Dosage: TOTAL OF 3 DOSES (2 G LOADING DOSE FOLLOWED BY 1.5 G EVERY 12 H).
     Route: 042

REACTIONS (1)
  - Kounis syndrome [Recovered/Resolved]
